FAERS Safety Report 15608033 (Version 1)
Quarter: 2018Q4

REPORT INFORMATION
  Report Type: Spontaneous
  Country: GB (occurrence: GB)
  Receive Date: 20181112
  Receipt Date: 20181112
  Transmission Date: 20190205
  Serious: Yes (Hospitalization, Other)
  Sender: FDA-Public Use
  Company Number: GB-TEVA-2018-GB-973896

PATIENT
  Age: 68 Year
  Sex: Female
  Weight: 54.5 kg

DRUGS (11)
  1. CARVEDILOL. [Concomitant]
     Active Substance: CARVEDILOL
  2. FUROSEMIDE. [Concomitant]
     Active Substance: FUROSEMIDE
  3. RIFAXIMIN. [Concomitant]
     Active Substance: RIFAXIMIN
  4. HUMALOG MIX50/50 [Concomitant]
     Active Substance: INSULIN LISPRO
  5. CREON [Concomitant]
     Active Substance: PANCRELIPASE AMYLASE\PANCRELIPASE LIPASE\PANCRELIPASE PROTEASE
  6. ADCAL-D3 [Concomitant]
     Active Substance: CALCIUM CARBONATE\CHOLECALCIFEROL
  7. THIAMINE. [Concomitant]
     Active Substance: THIAMINE
  8. LANSOPRAZOLE. [Concomitant]
     Active Substance: LANSOPRAZOLE
  9. LACTULOSE. [Concomitant]
     Active Substance: LACTULOSE
  10. SERTRALINE [Suspect]
     Active Substance: SERTRALINE HYDROCHLORIDE
     Dosage: 50 MILLIGRAM DAILY;
     Route: 048
     Dates: start: 20181001, end: 20181011
  11. FOLIC ACID. [Concomitant]
     Active Substance: FOLIC ACID

REACTIONS (1)
  - Electrocardiogram QT prolonged [Unknown]
